FAERS Safety Report 6071579-1 (Version None)
Quarter: 2009Q1

REPORT INFORMATION
  Report Type: 
  Country: None (occurrence: None)
  Receive Date: 20090205
  Receipt Date: 20090205
  Transmission Date: 20090719
  Serious: Yes (Death)
  Sender: FDA-Public Use
  Company Number: None

PATIENT
  Age: 74 Year
  Sex: Male

DRUGS (3)
  1. CETUXIMAB [Suspect]
     Indication: TRANSITIONAL CELL CARCINOMA
     Dosage: 400 MG CYCLE 1 DAY 1 ONCE IV; 350 MG WEEKLY IV
     Route: 042
     Dates: start: 20090106
  2. CETUXIMAB [Suspect]
     Indication: TRANSITIONAL CELL CARCINOMA
     Dosage: 400 MG CYCLE 1 DAY 1 ONCE IV; 350 MG WEEKLY IV
     Route: 042
     Dates: start: 20090113
  3. CETUXIMAB [Suspect]
     Indication: TRANSITIONAL CELL CARCINOMA
     Dosage: 400 MG CYCLE 1 DAY 1 ONCE IV; 350 MG WEEKLY IV
     Route: 042
     Dates: start: 20090120

REACTIONS (2)
  - DISEASE PROGRESSION [None]
  - PNEUMONIA [None]
